FAERS Safety Report 20592964 (Version 1)
Quarter: 2022Q1

REPORT INFORMATION
  Report Type: Spontaneous
  Country: US (occurrence: US)
  Receive Date: 20220315
  Receipt Date: 20220315
  Transmission Date: 20220423
  Serious: No
  Sender: FDA-Public Use
  Company Number: US-ELI_LILLY_AND_COMPANY-US202203005678

PATIENT
  Sex: Female

DRUGS (3)
  1. EMGALITY [Suspect]
     Active Substance: GALCANEZUMAB-GNLM
     Indication: Product used for unknown indication
     Dosage: UNK UNK, UNKNOWN
     Route: 065
     Dates: start: 202110
  2. EXCEDRIN ASPIRIN FREE [Concomitant]
     Indication: Headache
     Dosage: UNK UNK, PRN
  3. DICLOFENAC [Concomitant]
     Active Substance: DICLOFENAC
     Indication: Headache
     Dosage: UNK UNK, PRN

REACTIONS (3)
  - Injection site mass [Unknown]
  - Injection site pain [Unknown]
  - Underdose [Unknown]
